FAERS Safety Report 23708143 (Version 1)
Quarter: 2024Q2

REPORT INFORMATION
  Report Type: Spontaneous
  Country: US (occurrence: None)
  Receive Date: 20240404
  Receipt Date: 20240404
  Transmission Date: 20240715
  Serious: No
  Sender: FDA-Public Use
  Company Number: None

PATIENT
  Age: 88 Year
  Sex: Female

DRUGS (2)
  1. REPATHA [Suspect]
     Active Substance: EVOLOCUMAB
     Indication: Hyperlipidaemia
     Dosage: FREQUENCY : EVERY OTHER WEEK;?
  2. REPATHA [Suspect]
     Active Substance: EVOLOCUMAB
     Indication: Off label use

REACTIONS (3)
  - Neutrophilic dermatosis [None]
  - Therapy interrupted [None]
  - Off label use [None]
